FAERS Safety Report 4538118-5 (Version None)
Quarter: 2004Q4

REPORT INFORMATION
  Report Type: 
  Country: None (occurrence: None)
  Receive Date: 20041221
  Receipt Date: 20041208
  Transmission Date: 20050328
  Serious: Yes (Other)
  Sender: FDA-Public Use
  Company Number: 2004096313

PATIENT

DRUGS (2)
  1. NEURONTIN [Suspect]
     Indication: ILL-DEFINED DISORDER
  2. INTERFERON BETA (INTERFERON BETA) [Suspect]
     Indication: ILL-DEFINED DISORDER

REACTIONS (1)
  - CIRCULATORY COLLAPSE [None]
